FAERS Safety Report 12513399 (Version 1)
Quarter: 2016Q2

REPORT INFORMATION
  Report Type: Spontaneous
  Country: US (occurrence: None)
  Receive Date: 20160629
  Receipt Date: 20160629
  Transmission Date: 20160815
  Serious: Yes (Hospitalization)
  Sender: FDA-Public Use
  Company Number: None

PATIENT
  Age: 19 Year
  Sex: Male
  Weight: 75 kg

DRUGS (6)
  1. VINCRISTINE SULFATE. [Suspect]
     Active Substance: VINCRISTINE SULFATE
     Dates: end: 20160614
  2. METHOTREXATE [Suspect]
     Active Substance: METHOTREXATE
     Route: 037
     Dates: end: 20160608
  3. DAUNORUBICIN [Suspect]
     Active Substance: DAUNORUBICIN
     Dates: end: 20160614
  4. CYTARABINE. [Suspect]
     Active Substance: CYTARABINE
     Route: 037
     Dates: end: 20160531
  5. ONCASPAR [Suspect]
     Active Substance: PEGASPARGASE
     Dates: end: 20160604
  6. PREDNISONE. [Suspect]
     Active Substance: PREDNISONE
     Dates: end: 20160617

REACTIONS (16)
  - Vomiting [None]
  - Gastrointestinal necrosis [None]
  - Intestinal dilatation [None]
  - Peritonitis [None]
  - Pyrexia [None]
  - Nausea [None]
  - Anuria [None]
  - Haemorrhage [None]
  - Acidosis [None]
  - Pancytopenia [None]
  - Abdominal pain [None]
  - Multiple organ dysfunction syndrome [None]
  - Neutropenic colitis [None]
  - Intestinal perforation [None]
  - Adhesion [None]
  - Infarction [None]

NARRATIVE: CASE EVENT DATE: 20160625
